FAERS Safety Report 16411525 (Version 1)
Quarter: 2019Q2

REPORT INFORMATION
  Report Type: Spontaneous
  Country: AU (occurrence: AU)
  Receive Date: 20190610
  Receipt Date: 20190610
  Transmission Date: 20190711
  Serious: Yes (Other)
  Sender: FDA-Public Use
  Company Number: AU-BAUSCH-BL-2019-016279

PATIENT
  Age: 17 Year
  Sex: Female

DRUGS (5)
  1. METHOTREXATE. [Suspect]
     Active Substance: METHOTREXATE
     Indication: PRODUCT USED FOR UNKNOWN INDICATION
     Route: 065
  2. PREDNISOLONE. [Suspect]
     Active Substance: PREDNISOLONE
     Indication: PRODUCT USED FOR UNKNOWN INDICATION
     Route: 065
  3. RITUXIMAB. [Suspect]
     Active Substance: RITUXIMAB
     Indication: PRODUCT USED FOR UNKNOWN INDICATION
     Route: 065
  4. CYCLOPHOSPHAMIDE. [Suspect]
     Active Substance: CYCLOPHOSPHAMIDE
     Indication: PRODUCT USED FOR UNKNOWN INDICATION
     Route: 065
  5. HYDROXYCHLOROQUINE [Suspect]
     Active Substance: HYDROXYCHLOROQUINE
     Indication: PRODUCT USED FOR UNKNOWN INDICATION
     Route: 065

REACTIONS (21)
  - Fatigue [Unknown]
  - Haematochezia [Unknown]
  - Vasculitis [Unknown]
  - Cryoglobulinaemia [Unknown]
  - Disease progression [Unknown]
  - Recrudescent typhus [Unknown]
  - Tubulointerstitial nephritis [Unknown]
  - Stomatitis [Unknown]
  - Purpura [Unknown]
  - Malaise [Unknown]
  - Cholecystitis [Unknown]
  - Nephrocalcinosis [Unknown]
  - Palindromic rheumatism [Unknown]
  - Arthralgia [Unknown]
  - Neutropenia [Unknown]
  - Neuropathy peripheral [Unknown]
  - Polyarthritis [Unknown]
  - Sjogren^s syndrome [Unknown]
  - Mood swings [Unknown]
  - Paraproteinaemia [Unknown]
  - Tenosynovitis [Unknown]
